FAERS Safety Report 9786797 (Version 2)
Quarter: 2014Q1

REPORT INFORMATION
  Report Type: Spontaneous
  Country: US (occurrence: US)
  Receive Date: 20131227
  Receipt Date: 20140127
  Transmission Date: 20141002
  Serious: Yes (Other)
  Sender: FDA-Public Use
  Company Number: US-FRI-1000052457

PATIENT
  Age: 77 Year
  Sex: Female

DRUGS (4)
  1. TUDORZA PRESSAIR [Suspect]
     Indication: CHRONIC OBSTRUCTIVE PULMONARY DISEASE
     Dosage: 400MCG
     Route: 055
     Dates: start: 2013, end: 201311
  2. TUDORZA PRESSAIR [Suspect]
     Dosage: 400MCG
     Route: 055
     Dates: start: 201312
  3. PROPRANOLOL [Concomitant]
     Indication: HEART RATE INCREASED
  4. PRAVACID [Concomitant]
     Indication: GASTROOESOPHAGEAL REFLUX DISEASE

REACTIONS (1)
  - Age-related macular degeneration [Not Recovered/Not Resolved]
